FAERS Safety Report 21039128 (Version 1)
Quarter: 2022Q3

REPORT INFORMATION
  Report Type: Spontaneous
  Country: PL (occurrence: PL)
  Receive Date: 20220704
  Receipt Date: 20220704
  Transmission Date: 20221027
  Serious: Yes (Other)
  Sender: FDA-Public Use
  Company Number: PL-NOVARTISPH-NVSC2022PL147012

PATIENT
  Age: 50 Year
  Sex: Male

DRUGS (3)
  1. CYCLOSPORINE [Suspect]
     Active Substance: CYCLOSPORINE
     Indication: Product used for unknown indication
     Dosage: 150 MG, QD
     Route: 065
     Dates: start: 2015, end: 2021
  2. PREDNISONE [Concomitant]
     Active Substance: PREDNISONE
     Indication: Product used for unknown indication
     Dosage: 10 MG, QD
     Route: 065
     Dates: start: 2001, end: 2006
  3. ADALIMUMAB [Concomitant]
     Active Substance: ADALIMUMAB
     Indication: Product used for unknown indication
     Dosage: UNK
     Route: 065
     Dates: start: 2021

REACTIONS (10)
  - Cardiac aneurysm [Unknown]
  - Pancreatic cyst [Unknown]
  - Abdominal pain [Unknown]
  - Flatulence [Unknown]
  - Nausea [Unknown]
  - Gastritis [Unknown]
  - General physical health deterioration [Unknown]
  - Movement disorder [Unknown]
  - Joint contracture [Unknown]
  - Tendon rupture [Unknown]
